FAERS Safety Report 8674456 (Version 6)
Quarter: 2017Q2

REPORT INFORMATION
  Report Type: Report from Study
  Country: DE (occurrence: DE)
  Receive Date: 20120720
  Receipt Date: 20170618
  Transmission Date: 20170830
  Serious: Yes (Other)
  Sender: FDA-Public Use
  Company Number: DE-ROCHE-1061577

PATIENT
  Age: 75 Year
  Sex: Female
  Weight: 79 kg

DRUGS (14)
  1. LEFLUNOMID [Concomitant]
     Active Substance: LEFLUNOMIDE
     Route: 065
  2. NOVAMINSULFON [Concomitant]
     Active Substance: METAMIZOLE
  3. SPIRONOLACTONE. [Concomitant]
     Active Substance: SPIRONOLACTONE
  4. ATACAND [Concomitant]
     Active Substance: CANDESARTAN CILEXETIL
  5. TORASEMID [Concomitant]
     Active Substance: TORSEMIDE
  6. TOCILIZUMAB [Suspect]
     Active Substance: TOCILIZUMAB
     Route: 042
     Dates: start: 20120216
  7. CONCOR [Concomitant]
     Active Substance: BISOPROLOL FUMARATE
  8. MARCUMAR [Concomitant]
     Active Substance: PHENPROCOUMON
     Indication: ATRIAL FIBRILLATION
  9. DIGITOXIN [Concomitant]
     Active Substance: DIGITOXIN
  10. SIMVASTIN [Concomitant]
     Active Substance: SIMVASTATIN
  11. DEKRISTOL [Concomitant]
     Active Substance: CHOLECALCIFEROL
     Dosage: 20000 E
     Route: 065
  12. TOCILIZUMAB [Suspect]
     Active Substance: TOCILIZUMAB
     Indication: RHEUMATOID ARTHRITIS
     Route: 042
     Dates: start: 20120119, end: 20130121
  13. PANTOPRAZOL NATRIUM [Concomitant]
     Active Substance: PANTOPRAZOLE SODIUM
     Route: 065
  14. PARACETAMOL [Concomitant]
     Active Substance: ACETAMINOPHEN

REACTIONS (5)
  - Eyelids pruritus [Not Recovered/Not Resolved]
  - Drug ineffective [Unknown]
  - Peripheral sensorimotor neuropathy [Not Recovered/Not Resolved]
  - Pain in extremity [Not Recovered/Not Resolved]
  - Erythema of eyelid [Not Recovered/Not Resolved]

NARRATIVE: CASE EVENT DATE: 20120301
